FAERS Safety Report 6982939-6 (Version None)
Quarter: 2010Q3

REPORT INFORMATION
  Report Type: 
  Country: None (occurrence: None)
  Receive Date: 20100914
  Receipt Date: 20100422
  Transmission Date: 20110219
  Serious: Yes (Other)
  Sender: FDA-Public Use
  Company Number: US-PFIZER INC-2010034590

PATIENT
  Sex: Female

DRUGS (4)
  1. LYRICA [Suspect]
     Indication: FIBROMYALGIA
     Dosage: 75 MG, 2X/DAY
     Route: 048
     Dates: start: 20091026
  2. LYRICA [Suspect]
     Indication: NEURALGIA
  3. EFFEXOR [Concomitant]
     Indication: DEPRESSION
     Dosage: 150 MG DAILY
     Route: 048
  4. MICARDIS [Concomitant]
     Indication: HYPERTENSION
     Dosage: 20 MG DAILY
     Route: 048

REACTIONS (1)
  - WEIGHT INCREASED [None]
